FAERS Safety Report 5248011-0 (Version None)
Quarter: 2007Q1

REPORT INFORMATION
  Report Type: 
  Country: None (occurrence: None)
  Receive Date: 20070227
  Receipt Date: 20070216
  Transmission Date: 20070707
  Serious: Yes (Death)
  Sender: FDA-Public Use
  Company Number: JP-BRISTOL-MYERS SQUIBB COMPANY-13663638

PATIENT
  Age: 59 Year
  Sex: Female

DRUGS (2)
  1. MAXIPIME [Suspect]
     Indication: ACUTE ABDOMEN
     Route: 041
     Dates: start: 20070127, end: 20070127
  2. MALTOSE + LACTATED RINGERS SOLUTION [Concomitant]
     Route: 042
     Dates: start: 20070126, end: 20070127

REACTIONS (3)
  - ANAPHYLACTIC SHOCK [None]
  - CARDIO-RESPIRATORY ARREST [None]
  - MULTI-ORGAN FAILURE [None]
